FAERS Safety Report 9914851 (Version 3)
Quarter: 2014Q1

REPORT INFORMATION
  Report Type: Report from Study
  Country: US (occurrence: US)
  Receive Date: 20140220
  Receipt Date: 20140225
  Transmission Date: 20141002
  Serious: Yes (Death, Other)
  Sender: FDA-Public Use
  Company Number: US-JNJFOC-20140203512

PATIENT
  Age: 18 Year
  Sex: Male

DRUGS (2)
  1. IMBRUVICA [Suspect]
     Indication: BURKITT^S LYMPHOMA
     Route: 048
     Dates: start: 201401
  2. IMBRUVICA [Suspect]
     Indication: BURKITT^S LYMPHOMA
     Route: 048
     Dates: start: 20140114, end: 201401

REACTIONS (2)
  - Disease progression [Fatal]
  - Overdose [Recovered/Resolved]
